FAERS Safety Report 9419140 (Version 1)
Quarter: 2013Q3

REPORT INFORMATION
  Report Type: Report from Study
  Country: ID (occurrence: ID)
  Receive Date: 20130725
  Receipt Date: 20130725
  Transmission Date: 20140515
  Serious: Yes (Death, Hospitalization, Other)
  Sender: FDA-Public Use
  Company Number: ID-ROCHE-1252731

PATIENT
  Age: 80 Year
  Sex: Female

DRUGS (1)
  1. BONVIVA [Suspect]
     Indication: OSTEOPOROSIS
     Route: 048
     Dates: start: 20130313, end: 20130513

REACTIONS (3)
  - Pyrexia [Recovering/Resolving]
  - White blood cell count increased [Recovering/Resolving]
  - Cardiac failure [Fatal]
